FAERS Safety Report 13611373 (Version 6)
Quarter: 2017Q3

REPORT INFORMATION
  Report Type: Spontaneous
  Country: KR (occurrence: KR)
  Receive Date: 20170605
  Receipt Date: 20170915
  Transmission Date: 20171127
  Serious: Yes (Other)
  Sender: FDA-Public Use
  Company Number: KR-009507513-1705KOR015951

PATIENT
  Age: 67 Year
  Sex: Male
  Weight: 64.7 kg

DRUGS (43)
  1. DEXAMETHASONE. [Concomitant]
     Active Substance: DEXAMETHASONE
     Dosage: 10 MG, QD
     Route: 042
     Dates: start: 20170407, end: 20170407
  2. RAMOSETRON [Concomitant]
     Active Substance: RAMOSETRON HYDROCHLORIDE
     Indication: PROPHYLAXIS OF NAUSEA AND VOMITING
     Dosage: 0.3 MG, ONCE
     Route: 042
     Dates: start: 20170316, end: 20170316
  3. ROCURONIUM BROMIDE. [Concomitant]
     Active Substance: ROCURONIUM BROMIDE
     Indication: BIOPSY LYMPH GLAND
     Dosage: 50 MG, ONCE
     Route: 042
     Dates: start: 20170316, end: 20170316
  4. PYRIDOSTIGMINE BROMIDE. [Concomitant]
     Active Substance: PYRIDOSTIGMINE BROMIDE
     Indication: BIOPSY LYMPH GLAND
     Dosage: 15 MG, ONCE
     Route: 042
     Dates: start: 20170316, end: 20170316
  5. HEPARIN SODIUM. [Concomitant]
     Active Substance: HEPARIN SODIUM
     Indication: BIOPSY BONE MARROW
     Dosage: 20000 UNIT, ONCE
     Route: 042
     Dates: start: 20170322, end: 20170322
  6. FAMOTIDINE. [Concomitant]
     Active Substance: FAMOTIDINE
     Dosage: 20 MG, ONCE
     Route: 042
     Dates: start: 20170407, end: 20170407
  7. PANTOPRAZOLE [Concomitant]
     Active Substance: PANTOPRAZOLE
     Indication: PROPHYLAXIS
     Dosage: 40 MG, ONCE
     Route: 048
     Dates: start: 20170324, end: 20170327
  8. DOXORUBICIN [Concomitant]
     Active Substance: DOXORUBICIN
     Dosage: 44.25 MG, ONCE. CYCLE 2
     Route: 042
     Dates: start: 20170407, end: 20170407
  9. DEXAMETHASONE. [Concomitant]
     Active Substance: DEXAMETHASONE
     Dosage: 8 MG, QD
     Route: 048
     Dates: start: 20170408, end: 20170408
  10. PALONOSETRON HYDROCHLORIDE. [Concomitant]
     Active Substance: PALONOSETRON HYDROCHLORIDE
     Dosage: 0.3 MG, ONCE
     Route: 042
     Dates: start: 20170407, end: 20170407
  11. FENTANYL CITRATE. [Concomitant]
     Active Substance: FENTANYL CITRATE
     Indication: BIOPSY LYMPH GLAND
     Dosage: 30 MICROGRAM, ONCE
     Route: 042
     Dates: start: 20170316, end: 20170316
  12. ACETYLCYSTEINE. [Concomitant]
     Active Substance: ACETYLCYSTEINE
     Indication: BIOPSY LYMPH GLAND
     Dosage: 600 MG, TID
     Route: 042
     Dates: start: 20170317, end: 20170318
  13. DEXAMETHASONE. [Concomitant]
     Active Substance: DEXAMETHASONE
     Indication: PREMEDICATION
     Dosage: 8 MG, QD
     Route: 048
     Dates: start: 20170325, end: 20170325
  14. FERROUS SULFATE. [Concomitant]
     Active Substance: FERROUS SULFATE
     Indication: ANAEMIA
     Dosage: 1 TABLET, BID
     Route: 048
     Dates: start: 20170323, end: 20170324
  15. ALLOPURINOL. [Concomitant]
     Active Substance: ALLOPURINOL
     Indication: PROPHYLAXIS
     Dosage: 100 MG, TID
     Route: 048
     Dates: start: 20170324, end: 20170408
  16. CEFDITOREN PIVOXIL. [Concomitant]
     Active Substance: CEFDITOREN PIVOXIL
     Indication: INFECTION PROPHYLAXIS
     Dosage: 100 MG, TID
     Route: 048
     Dates: start: 20170328, end: 20170328
  17. CJ PLASMA SOLUTION A [Concomitant]
     Indication: BIOPSY LYMPH GLAND
     Dosage: 1000 ML, ONCE
     Route: 042
     Dates: start: 20170316, end: 20170316
  18. EMEND (FOSAPREPITANT DIMEGLUMINE) [Suspect]
     Active Substance: FOSAPREPITANT DIMEGLUMINE
     Dosage: 150 MG, ONCE
     Route: 042
     Dates: start: 20170407, end: 20170407
  19. DOXORUBICIN [Concomitant]
     Active Substance: DOXORUBICIN
     Indication: HODGKIN^S DISEASE
     Dosage: 43.5 MG, ONCE. CYCLE 1
     Route: 042
     Dates: start: 20170324, end: 20170324
  20. VINBLASTINE SULFATE. [Concomitant]
     Active Substance: VINBLASTINE SULFATE
     Indication: HODGKIN^S DISEASE
     Dosage: 10 MG, ONCE. CYCLE 1
     Route: 042
     Dates: start: 20170324, end: 20170324
  21. RINO EBASTEL [Concomitant]
     Indication: RHINITIS PROPHYLAXIS
     Dosage: 1 CAPSULE, ONCE
     Route: 048
     Dates: start: 20170320, end: 20170320
  22. DACARBAZINE. [Concomitant]
     Active Substance: DACARBAZINE
     Indication: HODGKIN^S DISEASE
     Dosage: 625.5 MG, ONCE. CYCLE 1
     Route: 042
     Dates: start: 20170324, end: 20170324
  23. DACARBAZINE. [Concomitant]
     Active Substance: DACARBAZINE
     Dosage: 663.75 MG, ONCE CYCLE 2
     Route: 042
     Dates: start: 20170407, end: 20170407
  24. DEXAMETHASONE. [Concomitant]
     Active Substance: DEXAMETHASONE
     Dosage: 8 MG, BID
     Route: 048
     Dates: start: 20170326, end: 20170327
  25. PROPOFOL. [Concomitant]
     Active Substance: PROPOFOL
     Indication: BIOPSY LYMPH GLAND
     Dosage: 120 MG, ONCE
     Route: 042
     Dates: start: 20170316, end: 20170316
  26. REMIFENTANIL HYDROCHLORIDE [Concomitant]
     Active Substance: REMIFENTANIL HYDROCHLORIDE
     Indication: BIOPSY LYMPH GLAND
     Dosage: 1 MG, ONCE
     Route: 042
     Dates: start: 20170316, end: 20170316
  27. KETOROLAC TROMETHAMINE. [Concomitant]
     Active Substance: KETOROLAC TROMETHAMINE
     Indication: PROCEDURAL PAIN
     Dosage: 30 MG, ONCE
     Route: 042
     Dates: start: 20170316, end: 20170316
  28. CHLORPHENIRAMINE. [Concomitant]
     Active Substance: CHLORPHENIRAMINE
     Indication: PROPHYLAXIS
     Dosage: 4 MG, ONCE
     Route: 042
     Dates: start: 20170318, end: 20170318
  29. ACETYLCYSTEINE. [Concomitant]
     Active Substance: ACETYLCYSTEINE
     Indication: PRODUCTIVE COUGH
     Dosage: 200 MG, TID
     Route: 048
     Dates: start: 20170323, end: 20170328
  30. CHLORPHENIRAMINE MALEATE. [Concomitant]
     Active Substance: CHLORPHENIRAMINE MALEATE
     Indication: ALLERGY PROPHYLAXIS
     Dosage: 4 MG, ONCE
     Route: 042
     Dates: start: 20170328, end: 20170328
  31. VINBLASTINE SULFATE. [Concomitant]
     Active Substance: VINBLASTINE SULFATE
     Dosage: 10 MG, ONCE. CYCLE 2
     Route: 042
     Dates: start: 20170407, end: 20170407
  32. DEXAMETHASONE. [Concomitant]
     Active Substance: DEXAMETHASONE
     Dosage: 8 MG, BID
     Route: 048
     Dates: start: 20170409, end: 20170409
  33. GLYCOPYRROLATE. [Concomitant]
     Active Substance: GLYCOPYRROLATE
     Indication: BIOPSY LYMPH GLAND
     Dosage: 0.2 MG, BID
     Route: 030
     Dates: start: 20170316, end: 20170316
  34. ATROPINE SULFATE. [Concomitant]
     Active Substance: ATROPINE SULFATE
     Indication: BIOPSY LYMPH GLAND
     Dosage: 0.5 MG, ONCE
     Route: 042
     Dates: start: 20170316, end: 20170316
  35. EMEND (FOSAPREPITANT DIMEGLUMINE) [Suspect]
     Active Substance: FOSAPREPITANT DIMEGLUMINE
     Indication: PROPHYLAXIS OF NAUSEA AND VOMITING
     Dosage: 150 MG, ONCE
     Route: 042
     Dates: start: 20170324, end: 20170324
  36. BLEOMYCIN [Concomitant]
     Active Substance: BLEOMYCIN SULFATE
     Indication: HODGKIN^S DISEASE
     Dosage: 17.4 MG, ONCE. CYCLE 1
     Route: 042
     Dates: start: 20170324, end: 20170324
  37. DEXAMETHASONE. [Concomitant]
     Active Substance: DEXAMETHASONE
     Indication: PREMEDICATION
     Dosage: 10 MG, QD
     Route: 042
     Dates: start: 20170324, end: 20170324
  38. PALONOSETRON HYDROCHLORIDE. [Concomitant]
     Active Substance: PALONOSETRON HYDROCHLORIDE
     Indication: PROPHYLAXIS OF NAUSEA AND VOMITING
     Dosage: 0.3 MG, ONCE
     Route: 042
     Dates: start: 20170324, end: 20170324
  39. MORPHINE SULFATE. [Concomitant]
     Active Substance: MORPHINE SULFATE
     Indication: PROCEDURAL PAIN
     Dosage: 5 MG, PRN
     Route: 042
     Dates: start: 20170317, end: 20170317
  40. FAMOTIDINE. [Concomitant]
     Active Substance: FAMOTIDINE
     Indication: PROPHYLAXIS
     Dosage: 20 MG, ONCE
     Route: 042
     Dates: start: 20170324, end: 20170324
  41. CEFTRIAXONE. [Concomitant]
     Active Substance: CEFTRIAXONE
     Indication: INFECTION PROPHYLAXIS
     Dosage: 2 G, ONCE
     Route: 042
     Dates: start: 20170328, end: 20170328
  42. BLEOMYCIN [Concomitant]
     Active Substance: BLEOMYCIN SULFATE
     Dosage: 17.7 MG, ONCE. CYCLE 2
     Route: 042
     Dates: start: 20170407, end: 20170407
  43. VIMOVO [Concomitant]
     Active Substance: ESOMEPRAZOLE MAGNESIUM\NAPROXEN
     Indication: PROCEDURAL PAIN
     Dosage: 1 TABLET, ONCE
     Route: 048
     Dates: start: 20170317, end: 20170320

REACTIONS (1)
  - Catheter site pain [Recovered/Resolved]

NARRATIVE: CASE EVENT DATE: 20170328
